FAERS Safety Report 17802789 (Version 4)
Quarter: 2020Q4

REPORT INFORMATION
  Report Type: Spontaneous
  Country: AT (occurrence: AT)
  Receive Date: 20200519
  Receipt Date: 20201125
  Transmission Date: 20210113
  Serious: Yes (Hospitalization, Other)
  Sender: FDA-Public Use
  Company Number: NVSC2020AT126719

PATIENT
  Age: 59 Year
  Sex: Female

DRUGS (6)
  1. BISOPROLOL [Suspect]
     Active Substance: BISOPROLOL
     Indication: HYPERTENSION
     Dosage: 1.25 MG, QD
     Route: 065
  2. DULOXETINE. [Interacting]
     Active Substance: DULOXETINE
     Indication: CONSTIPATION
     Dosage: 30 MG, QD SINCE 6 YEARS
     Route: 065
  3. DULOXETINE. [Interacting]
     Active Substance: DULOXETINE
     Indication: DEPRESSION
  4. DULOXETINE. [Interacting]
     Active Substance: DULOXETINE
     Indication: SLEEP DISORDER
  5. ARIPIPRAZOLE. [Interacting]
     Active Substance: ARIPIPRAZOLE
     Indication: DEPRESSION
     Dosage: 5 MG, QD SINCE 2 YEARS
     Route: 065
  6. CANDESARTAN. [Interacting]
     Active Substance: CANDESARTAN
     Indication: HYPERTENSION
     Dosage: 32/12MG, QD
     Route: 065

REACTIONS (12)
  - Myalgia [Recovered/Resolved]
  - Musculoskeletal stiffness [Recovered/Resolved]
  - Drug metabolising enzyme decreased [Recovered/Resolved]
  - Drug level increased [Recovered/Resolved]
  - Immobile [Recovered/Resolved]
  - Asthenia [Recovered/Resolved]
  - Toxicity to various agents [Recovered/Resolved]
  - Drug interaction [Recovered/Resolved]
  - Muscular weakness [Recovered/Resolved]
  - Myopathy [Recovered/Resolved]
  - Ophthalmoplegia [Recovered/Resolved]
  - Muscle disorder [Recovered/Resolved]
